FAERS Safety Report 16728811 (Version 2)
Quarter: 2019Q4

REPORT INFORMATION
  Report Type: Spontaneous
  Country: US (occurrence: US)
  Receive Date: 20190822
  Receipt Date: 20191010
  Transmission Date: 20200122
  Serious: Yes (Other)
  Sender: FDA-Public Use
  Company Number: US-PFIZER INC-2019354464

PATIENT
  Age: 50 Year
  Sex: Male
  Weight: 140.59 kg

DRUGS (1)
  1. VIAGRA [Suspect]
     Active Substance: SILDENAFIL CITRATE
     Indication: ERECTILE DYSFUNCTION
     Dosage: 10 MG, 1X/DAY

REACTIONS (5)
  - Lower limb fracture [Recovered/Resolved]
  - Off label use [Unknown]
  - Dizziness [Unknown]
  - Fall [Unknown]
  - Product use issue [Unknown]
